FAERS Safety Report 19900204 (Version 1)
Quarter: 2021Q3

REPORT INFORMATION
  Report Type: Spontaneous
  Country: US (occurrence: US)
  Receive Date: 20210930
  Receipt Date: 20210930
  Transmission Date: 20211014
  Serious: No
  Sender: FDA-Public Use
  Company Number: US-CELLTRION INC.-2021US009101

PATIENT

DRUGS (3)
  1. INFLIXIMAB [Suspect]
     Active Substance: INFLIXIMAB
     Indication: COLITIS ULCERATIVE
     Dosage: 10 MG/KG EVERY 4 WEEKS
     Dates: start: 2019
  2. INFLIXIMAB [Suspect]
     Active Substance: INFLIXIMAB
     Indication: INFLAMMATORY BOWEL DISEASE
     Dosage: 4 MG, EVERY 4 WEEKLY
     Route: 065
  3. ASACOL HD [Concomitant]
     Active Substance: MESALAMINE
     Dosage: UNK
     Dates: start: 2013

REACTIONS (5)
  - SARS-CoV-2 antibody test positive [Unknown]
  - Antibody test abnormal [Unknown]
  - Underdose [Unknown]
  - Overdose [Unknown]
  - Off label use [Unknown]
